FAERS Safety Report 12331134 (Version 1)
Quarter: 2016Q2

REPORT INFORMATION
  Report Type: Spontaneous
  Country: US (occurrence: None)
  Receive Date: 20160503
  Receipt Date: 20160503
  Transmission Date: 20160815
  Serious: No
  Sender: FDA-Public Use
  Company Number: None

PATIENT
  Age: 55 Year
  Sex: Female
  Weight: 71.67 kg

DRUGS (1)
  1. REGLAN [Suspect]
     Active Substance: METOCLOPRAMIDE HYDROCHLORIDE
     Indication: HEADACHE
     Dosage: 10MG 1 DOSE ONCE AT ER IV
     Route: 042
     Dates: start: 20160316, end: 20160316

REACTIONS (2)
  - Tremor [None]
  - Speech disorder [None]

NARRATIVE: CASE EVENT DATE: 20160316
